FAERS Safety Report 6313711-8 (Version None)
Quarter: 2009Q3

REPORT INFORMATION
  Report Type: 
  Country: None (occurrence: None)
  Receive Date: 20090814
  Receipt Date: 20090620
  Transmission Date: 20100115
  Serious: Yes (Death, Life-Threatening, Hospitalization)
  Sender: FDA-Public Use
  Company Number: 2006EU000358

PATIENT
  Age: 53 Year
  Sex: Male

DRUGS (25)
  1. TACROLIMUS [Suspect]
     Indication: RENAL TRANSPLANT
     Dosage: 1.5 MG, BID, ORAL
     Route: 048
     Dates: start: 20041021, end: 20041128
  2. DACLIZUMAB(DACLIZUMAB) [Suspect]
     Indication: RENAL TRANSPLANT
     Dosage: 160 MG, /D, IV NOS
     Route: 042
     Dates: start: 20041021, end: 20041128
  3. MYCOPHENOLATE MOFETIL [Suspect]
     Indication: RENAL TRANSPLANT
     Dosage: 500 MG, BID, ORAL
     Route: 048
     Dates: start: 20041021
  4. METHYLPREDNISOLONE 4MG TAB [Suspect]
     Indication: RENAL TRANSPLANT
     Dosage: 125 MG, UID/QD, IV NOS  8 MG BID ORAL
     Route: 042
     Dates: start: 20041021
  5. METHYLPREDNISOLONE 4MG TAB [Suspect]
     Indication: RENAL TRANSPLANT
     Dosage: 125 MG, UID/QD, IV NOS  8 MG BID ORAL
     Route: 042
     Dates: start: 20041024
  6. . [Concomitant]
  7. CYCLOSPORINE [Suspect]
     Indication: RENAL TRANSPLANT
     Dosage: UNKNOWN/D
  8. SIROLIMUS(SIROLIMUS) [Suspect]
     Indication: RENAL TRANSPLANT
     Dosage: UNKNOWN/D
  9. METOPROLOL SUCCINATE [Concomitant]
  10. DIFLUCAN [Concomitant]
  11. BELOC-ZOC (METOPROLOL SUCCINATE) [Concomitant]
  12. VALCYTE [Concomitant]
  13. PRAVASTATIN SODIUM [Concomitant]
  14. LIQUAEMIN INJ [Concomitant]
  15. AMIODARONE HYDROCHLORIDE [Concomitant]
  16. CEFAZOLIN [Concomitant]
  17. CEFPODOXIME (CEFPODOXIME) [Concomitant]
  18. CILASTATIN SODIUM (CILASTATIN SODIUM) [Concomitant]
  19. FUROSEMIDE [Concomitant]
  20. INSULIN (INSULIN) [Concomitant]
  21. CORVATON (MOLSIDOMINE) [Concomitant]
  22. MOXIFLOXACIN HCL [Concomitant]
  23. PIPERACILLIN (PIPERACILLIN SODIUM) [Concomitant]
  24. SULBACTAM (SULBACTAM SODIUM) [Concomitant]
  25. VANCOMYCIN [Concomitant]

REACTIONS (6)
  - ASPERGILLOSIS [None]
  - CANDIDIASIS [None]
  - PNEUMONIA FUNGAL [None]
  - RETROPERITONEAL HAEMATOMA [None]
  - SEPSIS [None]
  - SUBCUTANEOUS ABSCESS [None]
